FAERS Safety Report 24034140 (Version 1)
Quarter: 2024Q3

REPORT INFORMATION
  Report Type: Spontaneous
  Country: CN (occurrence: CN)
  Receive Date: 20240701
  Receipt Date: 20240701
  Transmission Date: 20241016
  Serious: Yes (Other)
  Sender: ALKEM
  Company Number: CN-ALKEM LABORATORIES LIMITED-CN-ALKEM-2024-13690

PATIENT
  Age: 84 Year
  Sex: Male

DRUGS (5)
  1. VANCOMYCIN [Suspect]
     Active Substance: VANCOMYCIN
     Indication: Pneumonia
     Dosage: 1 GRAM, BID (EVERY 12 HOURS)
     Route: 065
  2. VANCOMYCIN [Suspect]
     Active Substance: VANCOMYCIN
     Dosage: 0.5 GRAM, TID (EVERY 8 HOURS)
     Route: 065
  3. VANCOMYCIN [Suspect]
     Active Substance: VANCOMYCIN
     Dosage: 0.5 GRAM, BID (EVERY 12 HOURS)
     Route: 065
  4. DOXOFYLLINE [Suspect]
     Active Substance: DOXOFYLLINE
     Indication: Product used for unknown indication
     Dosage: UNK
     Route: 065
  5. AMBROXOL [Suspect]
     Active Substance: AMBROXOL
     Indication: Product used for unknown indication
     Dosage: UNK
     Route: 065

REACTIONS (2)
  - Drug-induced liver injury [Recovering/Resolving]
  - Drug level increased [Unknown]
